FAERS Safety Report 21925204 (Version 1)
Quarter: 2023Q1

REPORT INFORMATION
  Report Type: Spontaneous
  Country: FR (occurrence: FR)
  Receive Date: 20230130
  Receipt Date: 20230130
  Transmission Date: 20230417
  Serious: Yes (Hospitalization, Other)
  Sender: FDA-Public Use
  Company Number: FR-AFSSAPS-TO20223658

PATIENT
  Age: 40 Year
  Sex: Male
  Weight: 108 kg

DRUGS (10)
  1. CIPROFLOXACIN [Suspect]
     Active Substance: CIPROFLOXACIN
     Indication: Arthritis infective
     Dosage: 750 MILLIGRAM, TWO TIMES A DAY
     Route: 048
     Dates: start: 20221005, end: 20221130
  2. CIPROFLOXACIN [Suspect]
     Active Substance: CIPROFLOXACIN
     Indication: Osteomyelitis
  3. MEROPENEM [Suspect]
     Active Substance: MEROPENEM
     Indication: Osteomyelitis
     Dosage: 1 GRAM, FOUR TIMES/DAY
     Route: 042
     Dates: start: 20221130, end: 20221209
  4. MEROPENEM [Suspect]
     Active Substance: MEROPENEM
     Indication: Arthritis infective
  5. AUGMENTIN [Suspect]
     Active Substance: AMOXICILLIN\CLAVULANATE POTASSIUM
     Indication: Antibiotic prophylaxis
     Dosage: 2 GRAM, 3 TIMES A DAY
     Route: 042
     Dates: start: 20220915, end: 20221001
  6. BACTRIM [Suspect]
     Active Substance: SULFAMETHOXAZOLE\TRIMETHOPRIM
     Indication: Arthritis infective
     Dosage: 800/160MG 3 TIMES A DAY
     Route: 048
     Dates: start: 20221020, end: 20221129
  7. BACTRIM [Suspect]
     Active Substance: SULFAMETHOXAZOLE\TRIMETHOPRIM
     Indication: Osteomyelitis
  8. DAPTOMYCIN [Suspect]
     Active Substance: DAPTOMYCIN
     Indication: Arthritis infective
     Dosage: 850 MILLIGRAM, ONCE A DAY
     Route: 042
     Dates: start: 20221130, end: 20221209
  9. DAPTOMYCIN [Suspect]
     Active Substance: DAPTOMYCIN
     Indication: Osteomyelitis
  10. NOXAFIL [Suspect]
     Active Substance: POSACONAZOLE
     Indication: Antifungal prophylaxis
     Dosage: UNK
     Route: 042
     Dates: start: 20220915, end: 20220920

REACTIONS (2)
  - Cholestasis [Recovering/Resolving]
  - Hepatic cytolysis [Recovering/Resolving]

NARRATIVE: CASE EVENT DATE: 20220921
